FAERS Safety Report 19427840 (Version 4)
Quarter: 2021Q3

REPORT INFORMATION
  Report Type: Report from Study
  Country: TW (occurrence: TW)
  Receive Date: 20210617
  Receipt Date: 20210714
  Transmission Date: 20211014
  Serious: Yes (Death, Life-Threatening, Hospitalization)
  Sender: FDA-Public Use
  Company Number: TW-CELGENEUS-TWN-20210604212

PATIENT
  Age: 69 Year
  Sex: Male
  Weight: 69 kg

DRUGS (52)
  1. DIGOXIN. [Concomitant]
     Active Substance: DIGOXIN
     Indication: DEAFNESS
     Dosage: .5 MILLIGRAM
     Route: 048
     Dates: start: 20200928
  2. FUROSEMIDE. [Concomitant]
     Active Substance: FUROSEMIDE
     Dosage: 20 MILLIGRAM
     Route: 048
     Dates: start: 20210614, end: 202106
  3. TEICOPLANIN [Concomitant]
     Active Substance: TEICOPLANIN
     Indication: PNEUMOCOCCAL INFECTION
     Dosage: 900MG
     Route: 048
     Dates: start: 20210613, end: 20210614
  4. FRESH FROZEN PLASMA [Concomitant]
     Active Substance: HUMAN PLASMA
     Dosage: 6U
     Route: 065
     Dates: start: 20210615, end: 20210615
  5. POTASSIUM CHLORIDE. [Concomitant]
     Active Substance: POTASSIUM CHLORIDE
     Indication: HYPOKALAEMIA
     Dosage: 60MEQ
     Route: 065
     Dates: start: 20210618, end: 20210619
  6. MEROPENEM TRIHYDRATE [Concomitant]
     Active Substance: MEROPENEM
     Indication: SEPTIC SHOCK
     Dosage: 500MG
     Route: 065
     Dates: start: 202106, end: 202106
  7. PANTOPRAZOLE SODIUM. [Concomitant]
     Active Substance: PANTOPRAZOLE SODIUM
     Indication: GASTROINTESTINAL DISORDER
     Dosage: 40MG
     Route: 065
     Dates: start: 20210614, end: 202106
  8. QUETIAPINE FUMARATE. [Concomitant]
     Active Substance: QUETIAPINE FUMARATE
     Indication: IRRITABILITY
     Dosage: 25MG
     Route: 065
     Dates: start: 20210613, end: 202106
  9. IMIPRAMINE HCL [Concomitant]
     Active Substance: IMIPRAMINE HYDROCHLORIDE
     Indication: HERPES ZOSTER
     Dosage: 10MG
     Route: 065
     Dates: start: 20210609, end: 20210611
  10. CEFIXIME. [Concomitant]
     Active Substance: CEFIXIME
     Indication: ABDOMINAL PAIN
     Dosage: 20MG
     Route: 065
     Dates: start: 20210610, end: 20210611
  11. FENTANYL CITRATE. [Concomitant]
     Active Substance: FENTANYL CITRATE
     Indication: IRRITABILITY
     Dosage: 0.5MG
     Route: 048
     Dates: start: 20210611, end: 202106
  12. MULTIVITAMIN [Concomitant]
     Active Substance: VITAMINS
     Indication: SEPSIS
     Dosage: 1ML
     Route: 065
     Dates: start: 20210613, end: 202106
  13. FEXOFENADINE HCL [Concomitant]
     Active Substance: FEXOFENADINE HYDROCHLORIDE
     Indication: HERPES ZOSTER
     Dosage: 60MG
     Route: 065
     Dates: start: 20210609, end: 20210611
  14. ALBUMIN [Concomitant]
     Active Substance: ALBUMIN HUMAN
     Indication: SEPTIC SHOCK
     Dosage: 25MG
     Route: 065
     Dates: start: 20210618, end: 20210620
  15. DIPHENHYDRAMINE HCL [Concomitant]
     Active Substance: DIPHENHYDRAMINE HYDROCHLORIDE
     Indication: PROPHYLAXIS
     Dosage: 30MG
     Route: 065
     Dates: start: 20210614, end: 202106
  16. OXETHAZAINE [Concomitant]
     Active Substance: OXETHAZAINE
     Indication: ABDOMINAL PAIN
     Dosage: 40MG
     Route: 065
     Dates: start: 20210610, end: 20210611
  17. FEBUXOSTAT. [Concomitant]
     Active Substance: FEBUXOSTAT
     Indication: ACUTE KIDNEY INJURY
     Dosage: 40MTG
     Route: 065
     Dates: start: 20210615
  18. BOKEY [Concomitant]
     Indication: PROPHYLAXIS
     Dosage: 100MG
     Route: 048
     Dates: start: 20210524, end: 20210524
  19. LEUKOCYTE POOR RBC [Concomitant]
     Indication: GASTROINTESTINAL DISORDER
     Dosage: 2U
     Route: 065
     Dates: start: 20210615, end: 20210615
  20. FILGRASTIM [Concomitant]
     Active Substance: FILGRASTIM
     Indication: COLONY STIMULATING FACTOR THERAPY
  21. ALPRAZOLAM. [Concomitant]
     Active Substance: ALPRAZOLAM
     Indication: IRRITABILITY
     Dosage: 0.5MG
     Route: 065
     Dates: start: 20210613, end: 20210614
  22. POMALIDOMIDE [Suspect]
     Active Substance: POMALIDOMIDE
     Indication: PLASMA CELL MYELOMA
     Dosage: 4 MILLIGRAM
     Route: 048
     Dates: start: 20210524, end: 202106
  23. BISOPROLOL FUMARATE. [Concomitant]
     Active Substance: BISOPROLOL FUMARATE
     Indication: DEAFNESS
     Dosage: 2.5 MILLIGRAM
     Route: 048
     Dates: start: 20180604
  24. ZOLEDRONIC ACID [Concomitant]
     Active Substance: ZOLEDRONIC ACID
     Indication: PLASMA CELL MYELOMA
     Dosage: 4MG
     Route: 048
     Dates: start: 20210118, end: 20210524
  25. CIPROFLOXACIN. [Concomitant]
     Active Substance: CIPROFLOXACIN
     Indication: PNEUMONIA
     Dosage: 400MG
     Route: 048
     Dates: start: 20210614, end: 20210616
  26. LEUCOCYTE DEP [Concomitant]
     Indication: THROMBOCYTOPENIA
     Dosage: 24U
     Route: 065
     Dates: start: 20210613, end: 20210614
  27. MENPHENCALA [Concomitant]
     Indication: HERPES ZOSTER
     Dosage: 1
     Route: 061
     Dates: start: 20210609, end: 20210609
  28. ANIDULAFUNGIN [Concomitant]
     Active Substance: ANIDULAFUNGIN
     Indication: PNEUMONIA PNEUMOCOCCAL
     Dosage: 200MG
     Route: 065
     Dates: start: 20210620, end: 20210620
  29. AMINO ACID [Concomitant]
     Active Substance: AMINO ACIDS, SOURCE UNSPECIFIED
     Indication: NUTRITIONAL SUPPLEMENTATION
     Dosage: 1000ML
     Route: 065
     Dates: start: 20210613, end: 202106
  30. FUROSEMIDE. [Concomitant]
     Active Substance: FUROSEMIDE
     Indication: DEAFNESS
     Dosage: 20 MILLIGRAM
     Route: 048
     Dates: start: 20200928
  31. THIAMINE HCL [Concomitant]
     Active Substance: THIAMINE HYDROCHLORIDE
     Indication: NUTRITIONAL SUPPLEMENTATION
     Dosage: 100MG
     Route: 065
     Dates: start: 20210617, end: 202106
  32. FILGRASTIM [Concomitant]
     Active Substance: FILGRASTIM
     Indication: NEUTROPENIA
     Dosage: 300MG
     Route: 065
     Dates: start: 20210617, end: 20210621
  33. FAMOTIDINE. [Concomitant]
     Active Substance: FAMOTIDINE
     Indication: ABDOMINAL PAIN
     Dosage: UNKNOWN
     Route: 048
     Dates: start: 20210610, end: 20210611
  34. CYCLOPHOSPHAMIDE. [Concomitant]
     Active Substance: CYCLOPHOSPHAMIDE
     Indication: PRODUCT USED FOR UNKNOWN INDICATION
     Dosage: 400MG
     Route: 065
     Dates: start: 20210524, end: 20210607
  35. FUROSEMIDE. [Concomitant]
     Active Substance: FUROSEMIDE
     Indication: ACUTE KIDNEY INJURY
     Dosage: 20 MILLIGRAM
     Route: 048
     Dates: start: 20210613, end: 20210613
  36. VALTREX [Concomitant]
     Active Substance: VALACYCLOVIR HYDROCHLORIDE
     Indication: HERPES ZOSTER
     Dosage: 1500 MILLIGRAM
     Route: 048
     Dates: start: 20210609, end: 20210711
  37. IMMUNE GLOBULIN [Concomitant]
     Indication: PANCYTOPENIA
     Dosage: 360G
     Route: 065
     Dates: start: 20210615, end: 20210616
  38. DOXYCYCLINE HCL [Concomitant]
     Active Substance: DOXYCYCLINE HYDROCHLORIDE
     Indication: SEPTIC SHOCK
     Dosage: 100MG
     Route: 065
     Dates: start: 20210618, end: 202106
  39. NOREPINEPHRINE. [Concomitant]
     Active Substance: NOREPINEPHRINE
     Indication: SEPTIC SHOCK
     Dosage: 16MG
     Route: 065
     Dates: start: 20210618, end: 202106
  40. PROPOFOL. [Concomitant]
     Active Substance: PROPOFOL
     Indication: SEDATION
     Dosage: 200M
     Route: 065
     Dates: start: 20210613, end: 202106
  41. BISACODYL. [Concomitant]
     Active Substance: BISACODYL
     Indication: ABDOMINAL PAIN
     Dosage: 10MG
     Route: 065
     Dates: start: 20210610, end: 20210611
  42. SPIRONOLACTONE. [Concomitant]
     Active Substance: SPIRONOLACTONE
     Indication: CARDIAC FAILURE
     Dosage: 25MG
     Route: 048
     Dates: start: 20200413, end: 202106
  43. CEFEPIME HCL [Concomitant]
     Active Substance: CEFEPIME HYDROCHLORIDE
     Indication: PNEUMOCOCCAL INFECTION
     Dosage: 200MG
     Route: 048
     Dates: start: 20210611, end: 202106
  44. ACYCLOVIR. [Concomitant]
     Active Substance: ACYCLOVIR
     Indication: HERPES ZOSTER
     Dosage: 700MG
     Route: 065
     Dates: start: 20210611, end: 202106
  45. TRANEXAMIC ACID. [Concomitant]
     Active Substance: TRANEXAMIC ACID
     Indication: GASTROINTESTINAL DISORDER
     Dosage: 500MG
     Route: 065
     Dates: start: 20210613, end: 202106
  46. LEUCOCYTE DEP [Concomitant]
     Dosage: 24U
     Route: 065
     Dates: start: 20210615, end: 20210615
  47. FRESH FROZEN PLASMA [Concomitant]
     Active Substance: HUMAN PLASMA
     Indication: SEPSIS
     Dosage: 6U
     Route: 065
     Dates: start: 20210614, end: 20210614
  48. HYDROCORTISONE SODIUM [Concomitant]
     Active Substance: HYDROCORTISONE SODIUM SUCCINATE
     Indication: SEPTIC SHOCK
     Dosage: 50MG
     Route: 065
     Dates: start: 202106, end: 202106
  49. LACTATED RINGERS SOLUTION [Concomitant]
     Active Substance: CALCIUM CHLORIDE\POTASSIUM CHLORIDE\SODIUM CHLORIDE\SODIUM LACTATE
     Indication: SEPTIC SHOCK
     Dosage: 500ML
     Route: 065
     Dates: start: 202106, end: 202106
  50. TETRACYCLINE HCL [Concomitant]
     Active Substance: TETRACYCLINE HYDROCHLORIDE
     Indication: HERPES ZOSTER
     Dosage: UNKNOWN
     Route: 065
     Dates: start: 20210609, end: 202106
  51. DIMETHICONE. [Concomitant]
     Active Substance: DIMETHICONE
     Indication: ABDOMINAL PAIN
     Dosage: 20MG
     Route: 065
     Dates: start: 20210610, end: 20210611
  52. CALCIUM [Concomitant]
     Active Substance: CALCIUM
     Indication: HYPOKALAEMIA
     Dosage: 15G
     Route: 065
     Dates: start: 20210615, end: 20210615

REACTIONS (4)
  - Pneumonia pneumococcal [Unknown]
  - Sepsis [Unknown]
  - Septic shock [Fatal]
  - Hepatitis acute [Unknown]

NARRATIVE: CASE EVENT DATE: 20210611
